FAERS Safety Report 10515731 (Version 2)
Quarter: 2014Q4

REPORT INFORMATION
  Report Type: Spontaneous
  Country: US (occurrence: US)
  Receive Date: 20141014
  Receipt Date: 20141105
  Transmission Date: 20150528
  Serious: No
  Sender: FDA-Public Use
  Company Number: US-ASTRAZENECA-2014SE72607

PATIENT
  Sex: Female

DRUGS (1)
  1. PULMICORT TURBUHALER [Suspect]
     Active Substance: BUDESONIDE
     Indication: BRONCHITIS
     Dosage: 90 MCG, 2 PUFFS, TWO TIMES A DAY
     Route: 055

REACTIONS (4)
  - Hypoacusis [Unknown]
  - Cognitive disorder [Unknown]
  - Lung disorder [Unknown]
  - Product use issue [Unknown]
